FAERS Safety Report 7875633-0 (Version None)
Quarter: 2011Q4

REPORT INFORMATION
  Report Type: 
  Country: None (occurrence: None)
  Receive Date: 20111031
  Receipt Date: 20111026
  Transmission Date: 20120403
  Serious: Yes (Other)
  Sender: FDA-Public Use
  Company Number: FR-ABBOTT-11P-056-0857465-00

PATIENT
  Sex: Female
  Weight: 82 kg

DRUGS (7)
  1. HUMIRA [Suspect]
     Indication: COLITIS
     Dosage: 160MG THEN 80MG THEN 40MG/EOW
     Route: 058
     Dates: start: 20110617
  2. IMURAN [Suspect]
     Indication: COLITIS
     Route: 048
     Dates: start: 20110318
  3. IMURAN [Suspect]
     Indication: CROHN'S DISEASE
  4. CORTICOTHERAPY (NOS) [Concomitant]
     Indication: COLITIS
  5. PENTASA [Suspect]
     Indication: CROHN'S DISEASE
     Dosage: 2 TO 4 GRAMS/D
     Dates: start: 20101203
  6. HUMIRA [Suspect]
     Indication: CROHN'S DISEASE
  7. HYDROCORTISONE [Concomitant]
     Indication: PRODUCT USED FOR UNKNOWN INDICATION

REACTIONS (4)
  - INFLAMMATION [None]
  - CHOLESTASIS [None]
  - CYTOLYTIC HEPATITIS [None]
  - MACROCYTOSIS [None]
